FAERS Safety Report 5045527-7 (Version None)
Quarter: 2006Q2

REPORT INFORMATION
  Report Type: 
  Country: None (occurrence: None)
  Receive Date: 20060601
  Receipt Date: 20060324
  Transmission Date: 20061013
  Serious: No
  Sender: FDA-Public Use
  Company Number: 2006-BP-01288BP

PATIENT
  Sex: Female

DRUGS (13)
  1. SPIRIVA HANDIHALER (TIOTOPIUM BROMIDE) [Suspect]
     Dosage: 18 MCG (18 MCG) IH
     Route: 055
     Dates: start: 20051201
  2. HYDROCHLOROTHIAZIDE [Concomitant]
  3. SINGULAIR [Concomitant]
  4. CHOLESTRIN (HYMECROMONE) [Concomitant]
  5. ALBUTEROL [Concomitant]
  6. FOSAMAX [Concomitant]
  7. LACHYDRIN (LACTIC ACID) [Concomitant]
  8. DESONIDE [Concomitant]
  9. APECOXIN (DOXYCYCLINE MONOHYDRATE) [Concomitant]
  10. CENTRUM (CENTRUM) [Concomitant]
  11. CA + D (CALCIUM D) [Concomitant]
  12. VITAMIN E [Concomitant]
  13. FIBERCON (POLYCARBOPHIL CALCIUM) [Concomitant]

REACTIONS (1)
  - DYSPNOEA EXACERBATED [None]
